FAERS Safety Report 9933191 (Version 2)
Quarter: 2015Q2

REPORT INFORMATION
  Report Type: Spontaneous
  Country: US (occurrence: US)
  Receive Date: 20140228
  Receipt Date: 20150526
  Transmission Date: 20150821
  Serious: No
  Sender: FDA-Public Use
  Company Number: US-GLAXOSMITHKLINE-A1054139A

PATIENT
  Age: 33 Year
  Sex: Female

DRUGS (1)
  1. LAMICTAL [Suspect]
     Active Substance: LAMOTRIGINE
     Indication: DEPRESSION
     Dosage: 100 MG, QD
     Route: 048

REACTIONS (6)
  - Swelling face [Unknown]
  - Off label use [Unknown]
  - Nonspecific reaction [Unknown]
  - Mouth swelling [Unknown]
  - Rash [Unknown]
  - Lip swelling [Unknown]

NARRATIVE: CASE EVENT DATE: 201311
